FAERS Safety Report 7271581-8 (Version None)
Quarter: 2011Q1

REPORT INFORMATION
  Report Type: 
  Country: None (occurrence: None)
  Receive Date: 20110203
  Receipt Date: 20110126
  Transmission Date: 20110831
  Serious: Yes (Death)
  Sender: FDA-Public Use
  Company Number: GB-TEVA-265360ISR

PATIENT
  Sex: Female

DRUGS (3)
  1. FLUOXETINE [Suspect]
  2. CODEINE SULFATE [Suspect]
  3. DILTIAZEM [Suspect]

REACTIONS (1)
  - INTENTIONAL OVERDOSE [None]
